FAERS Safety Report 5692259-8 (Version None)
Quarter: 2008Q2

REPORT INFORMATION
  Report Type: 
  Country: None (occurrence: None)
  Receive Date: 20080402
  Receipt Date: 20080321
  Transmission Date: 20081010
  Serious: Yes (Other)
  Sender: FDA-Public Use
  Company Number: FR-PFIZER INC-2008026557

PATIENT
  Sex: Female

DRUGS (3)
  1. VFEND [Suspect]
     Indication: ASPERGILLOSIS
     Route: 042
  2. VFEND [Interacting]
     Route: 042
  3. HAEMODIALYTICS AND HAEMOFILTRATES [Interacting]

REACTIONS (2)
  - DRUG INEFFECTIVE [None]
  - DRUG INTERACTION [None]
